FAERS Safety Report 5797172-3 (Version None)
Quarter: 2008Q2

REPORT INFORMATION
  Report Type: 
  Country: None (occurrence: None)
  Receive Date: 20080627
  Receipt Date: 20080611
  Transmission Date: 20081010
  Serious: Yes (Death, Other)
  Sender: FDA-Public Use
  Company Number: 2008US000687

PATIENT
  Sex: Male

DRUGS (1)
  1. AMBISOME [Suspect]
     Indication: BRONCHOPULMONARY ASPERGILLOSIS
     Dosage: 3 MG/KG, IUD/QD
     Dates: start: 20080108, end: 20080125

REACTIONS (4)
  - ACUTE MYELOID LEUKAEMIA [None]
  - BLOOD BILIRUBIN INCREASED [None]
  - INFECTION [None]
  - JAUNDICE [None]
